FAERS Safety Report 8103171-9 (Version None)
Quarter: 2012Q1

REPORT INFORMATION
  Report Type: 
  Country: None (occurrence: None)
  Receive Date: 20120201
  Receipt Date: 20120124
  Transmission Date: 20120608
  Serious: Yes (Other)
  Sender: FDA-Public Use
  Company Number: US-JNJFOC-20120111746

PATIENT
  Sex: Male
  Weight: 90.72 kg

DRUGS (6)
  1. RISPERDAL [Suspect]
     Dosage: 50 MG IN THE MORNING AND 50 MG IN THE EVENING
     Route: 048
     Dates: start: 20060101
  2. RISPERDAL [Suspect]
     Dosage: 75 MG IN THE MORNING AND 50 MG IN THE EVENING
     Route: 048
     Dates: start: 20110101
  3. RISPERDAL [Suspect]
     Dosage: 100 MG IN THE MORNING AND 100 MG IN THE EVENING
     Route: 048
  4. RISPERDAL [Suspect]
     Route: 048
  5. TOPAMAX [Suspect]
     Indication: EPILEPSY
     Route: 048
  6. RISPERDAL [Suspect]
     Indication: AGGRESSION
     Dosage: 75 MG IN THE MORINING AND 75 MG IN THE EVENING
     Route: 048
     Dates: end: 20110101

REACTIONS (5)
  - AGGRESSION [None]
  - THERAPEUTIC RESPONSE UNEXPECTED [None]
  - DROOLING [None]
  - WRONG TECHNIQUE IN DRUG USAGE PROCESS [None]
  - CONVULSION [None]
